FAERS Safety Report 6290649-6 (Version None)
Quarter: 2009Q3

REPORT INFORMATION
  Report Type: 
  Country: None (occurrence: None)
  Receive Date: 20090727
  Receipt Date: 20080902
  Transmission Date: 20100115
  Serious: Yes (Other)
  Sender: FDA-Public Use
  Company Number: OMPQ-PR-0809S-0749

PATIENT
  Age: 54 Year
  Sex: Female

DRUGS (1)
  1. OMNIPAQUE 300 [Suspect]
     Indication: CHEST PAIN
     Dosage: 125 ML, SINGLE DOSE, IV
     Route: 042
     Dates: start: 20080902, end: 20080902

REACTIONS (1)
  - ANAPHYLACTOID REACTION [None]
